FAERS Safety Report 18393241 (Version 4)
Quarter: 2020Q4

REPORT INFORMATION
  Report Type: Spontaneous
  Country: JP (occurrence: JP)
  Receive Date: 20201016
  Receipt Date: 20201217
  Transmission Date: 20210114
  Serious: Yes (Hospitalization)
  Sender: FDA-Public Use
  Company Number: JP-JNJFOC-A-US2019-199826

PATIENT
  Age: 51 Year
  Sex: Female

DRUGS (18)
  1. VENTAVIS [Suspect]
     Active Substance: ILOPROST
     Indication: SYSTEMIC LUPUS ERYTHEMATOSUS
     Route: 055
     Dates: start: 20190826, end: 20190826
  2. METFORMIN HYDROCHLORIDE. [Concomitant]
     Active Substance: METFORMIN HYDROCHLORIDE
  3. LOSARTAN K [Concomitant]
     Active Substance: LOSARTAN POTASSIUM
     Indication: LUPUS NEPHRITIS
  4. VENTAVIS [Suspect]
     Active Substance: ILOPROST
     Indication: PULMONARY ARTERIAL HYPERTENSION
     Route: 055
     Dates: start: 20190807, end: 20190807
  5. WARFARIN [Concomitant]
     Active Substance: WARFARIN
  6. PARIET [Concomitant]
     Active Substance: RABEPRAZOLE SODIUM
     Indication: PROPHYLAXIS
  7. OXYGEN. [Concomitant]
     Active Substance: OXYGEN
     Indication: PULMONARY ARTERIAL HYPERTENSION
  8. WARFARIN POTASSIUM [Concomitant]
     Active Substance: WARFARIN POTASSIUM
  9. FUROSEMIDE. [Concomitant]
     Active Substance: FUROSEMIDE
  10. PREDNISOLONE. [Concomitant]
     Active Substance: PREDNISOLONE
  11. UPTRAVI [Concomitant]
     Active Substance: SELEXIPAG
     Indication: PULMONARY ARTERIAL HYPERTENSION
  12. NESINA [Concomitant]
     Active Substance: ALOGLIPTIN BENZOATE
  13. VENTAVIS [Suspect]
     Active Substance: ILOPROST
     Route: 055
     Dates: start: 20190925, end: 20191129
  14. PROGRAF [Concomitant]
     Active Substance: TACROLIMUS
  15. REVATIO [Concomitant]
     Active Substance: SILDENAFIL CITRATE
  16. VOLIBRIS [Concomitant]
     Active Substance: AMBRISENTAN
     Indication: PULMONARY ARTERIAL HYPERTENSION
  17. BONALON [Concomitant]
     Active Substance: ALENDRONATE SODIUM
     Indication: PROPHYLAXIS
  18. HYDROXYCHLOROQUINE [Concomitant]
     Active Substance: HYDROXYCHLOROQUINE

REACTIONS (2)
  - Pancreatic neoplasm [Not Recovered/Not Resolved]
  - Inappropriate schedule of product administration [Unknown]

NARRATIVE: CASE EVENT DATE: 20190925
